FAERS Safety Report 13400477 (Version 1)
Quarter: 2017Q2

REPORT INFORMATION
  Report Type: Spontaneous
  Country: US (occurrence: US)
  Receive Date: 20170404
  Receipt Date: 20170404
  Transmission Date: 20170830
  Serious: No
  Sender: FDA-Public Use
  Company Number: US-MYLANLABS-2017M1008481

PATIENT
  Sex: Female

DRUGS (2)
  1. DOXYCYCLINE HYCLATE DELAYED-RELEASE TABLETS, USP [Suspect]
     Active Substance: DOXYCYCLINE HYCLATE
     Indication: BURN INFECTION
     Dosage: 100 MG, BID
     Route: 048
     Dates: start: 20170201
  2. METFORMIN [Concomitant]
     Active Substance: METFORMIN HYDROCHLORIDE
     Indication: PRODUCT USED FOR UNKNOWN INDICATION
     Dosage: UNK

REACTIONS (1)
  - Gastrointestinal disorder [Not Recovered/Not Resolved]

NARRATIVE: CASE EVENT DATE: 20170201
